FAERS Safety Report 7672654-8 (Version None)
Quarter: 2011Q3

REPORT INFORMATION
  Report Type: 
  Country: None (occurrence: None)
  Receive Date: 20110809
  Receipt Date: 20110804
  Transmission Date: 20111222
  Serious: Yes (Death)
  Sender: FDA-Public Use
  Company Number: US-BAYER-2011-048416

PATIENT
  Age: 46 Year
  Sex: Male

DRUGS (2)
  1. ANTIHYPERTENSIVES [Concomitant]
  2. SORAFENIB (RAF KINASE INHIBITOR) [Suspect]
     Indication: HEPATIC NEOPLASM MALIGNANT
     Dosage: UNK
     Route: 048
     Dates: start: 20110531, end: 20110602

REACTIONS (5)
  - DEATH [None]
  - FATIGUE [None]
  - MUSCLE SPASMS [None]
  - DYSPNOEA EXERTIONAL [None]
  - DIZZINESS [None]
